FAERS Safety Report 7315961-0 (Version None)
Quarter: 2011Q1

REPORT INFORMATION
  Report Type: 
  Country: None (occurrence: None)
  Receive Date: 20110214
  Receipt Date: 20110203
  Transmission Date: 20110831
  Serious: Yes (Other)
  Sender: FDA-Public Use
  Company Number: 026907

PATIENT
  Sex: Male

DRUGS (1)
  1. NITROGLYCERIN [Suspect]

REACTIONS (2)
  - HYPOTENSION [None]
  - DEHYDRATION [None]
